FAERS Safety Report 20095733 (Version 1)
Quarter: 2021Q4

REPORT INFORMATION
  Report Type: Report from Study
  Country: BR (occurrence: BR)
  Receive Date: 20211122
  Receipt Date: 20211122
  Transmission Date: 20220303
  Serious: Yes (Other)
  Sender: FDA-Public Use
  Company Number: BR-NOVARTISPH-NVSC2021BR266010

PATIENT
  Age: 50 Year
  Sex: Female

DRUGS (7)
  1. LETROZOLE [Suspect]
     Active Substance: LETROZOLE
     Indication: Hormone receptor positive HER2 negative breast cancer
     Dosage: 2.5 MG, QD
     Route: 065
     Dates: start: 201708
  2. RIBOCICLIB [Suspect]
     Active Substance: RIBOCICLIB
     Indication: Hormone receptor positive HER2 negative breast cancer
     Dosage: 600 MG, QD (600MG/DAY FOR 21 DAYS EACH 28 DAYS)
     Route: 065
     Dates: start: 202004
  3. PACLITAXEL [Suspect]
     Active Substance: PACLITAXEL
     Indication: Hormone receptor positive HER2 negative breast cancer
     Dosage: 80 MG/M2, QW (WEEKLY FOR 12 WEEKS)
     Route: 065
  4. DOXORUBICIN [Suspect]
     Active Substance: DOXORUBICIN
     Indication: Hormone receptor positive HER2 negative breast cancer
     Dosage: 40 MG/M2 (EACH 21 DAYS FOR 4 CYCLES)
     Route: 065
  5. FULVESTRANT [Suspect]
     Active Substance: FULVESTRANT
     Indication: Hormone receptor positive HER2 negative breast cancer
     Dosage: 500 MG, (EACH 28 DAYS)
     Route: 065
  6. CYCLOPHOSPHAMIDE [Concomitant]
     Active Substance: CYCLOPHOSPHAMIDE
     Indication: Product used for unknown indication
     Dosage: 600 MG/M2 (EACH 21 DAYS FOR 4 CYCLES)
     Route: 065
  7. DENOSUMAB [Concomitant]
     Active Substance: DENOSUMAB
     Indication: Osteoporosis prophylaxis
     Dosage: UNK (SEMIANUALLY)
     Route: 065
     Dates: start: 201708

REACTIONS (8)
  - Breast cancer metastatic [Unknown]
  - Neutropenia [Recovered/Resolved]
  - Lymphadenopathy [Unknown]
  - Supraclavicular fossa pain [Unknown]
  - Disease recurrence [Unknown]
  - Anaemia [Recovered/Resolved]
  - Asthenia [Recovered/Resolved]
  - Therapy partial responder [Unknown]

NARRATIVE: CASE EVENT DATE: 20200101
